FAERS Safety Report 24081184 (Version 1)
Quarter: 2024Q3

REPORT INFORMATION
  Report Type: Spontaneous
  Country: US (occurrence: US)
  Receive Date: 20240711
  Receipt Date: 20240711
  Transmission Date: 20241017
  Serious: No
  Sender: KRAMER LABORATORIES
  Company Number: US-KRAMERLABS-2024-US-005401

PATIENT
  Age: 37 Year
  Sex: Female

DRUGS (2)
  1. KETOCONAZOLE [Suspect]
     Active Substance: KETOCONAZOLE
     Indication: Product used for unknown indication
     Route: 061
  2. HYDROCORTISONE [Suspect]
     Active Substance: HYDROCORTISONE\HYDROCORTISONE ACETATE
     Indication: Product used for unknown indication
     Route: 061

REACTIONS (1)
  - Drug ineffective [Unknown]
